FAERS Safety Report 6494559-0 (Version None)
Quarter: 2009Q4

REPORT INFORMATION
  Report Type: 
  Country: None (occurrence: None)
  Receive Date: 20091214
  Receipt Date: 20090304
  Transmission Date: 20100525
  Serious: No
  Sender: FDA-Public Use
  Company Number: US-BRISTOL-MYERS SQUIBB COMPANY-14528988

PATIENT

DRUGS (2)
  1. ABILIFY [Suspect]
     Dosage: 1 DF = 2-5 MG
  2. ANTIDEPRESSANT [Suspect]

REACTIONS (1)
  - DYSPEPSIA [None]
